FAERS Safety Report 5262131-6 (Version None)
Quarter: 2007Q1

REPORT INFORMATION
  Report Type: 
  Country: None (occurrence: None)
  Receive Date: 20070311
  Receipt Date: 20070228
  Transmission Date: 20070707
  Serious: Yes (Hospitalization, Other)
  Sender: FDA-Public Use
  Company Number: 2006UW26139

PATIENT
  Sex: Male
  Weight: 46.8 kg

DRUGS (4)
  1. SEROQUEL [Suspect]
     Indication: ABNORMAL BEHAVIOUR
     Dosage: 25 MG, 75 MG AND 100 MG
     Route: 048
     Dates: start: 20050503, end: 20051225
  2. ABILIFY [Concomitant]
     Dates: start: 20050401
  3. RISPERDAL [Concomitant]
  4. ZYPREXA [Concomitant]

REACTIONS (5)
  - CONVULSION [None]
  - DIABETES MELLITUS NON-INSULIN-DEPENDENT [None]
  - DIABETIC KETOACIDOSIS [None]
  - PANCREATITIS [None]
  - RESPIRATORY DISORDER [None]
